FAERS Safety Report 4345980-8 (Version None)
Quarter: 2004Q2

REPORT INFORMATION
  Report Type: 
  Country: None (occurrence: None)
  Receive Date: 20040420
  Receipt Date: 20040408
  Transmission Date: 20050107
  Serious: Yes (Other)
  Sender: FDA-Public Use
  Company Number: GBWYE564806FEB04

PATIENT
  Age: 35 Year
  Sex: Female

DRUGS (4)
  1. EFFEXOR [Suspect]
     Indication: DEPRESSION
     Dosage: 37.5 MG 2X PER 1 DAY
     Route: 048
     Dates: start: 20040127
  2. CITALOPRAM HYDROBROMIDE [Suspect]
     Dosage: 16 DROPS
     Dates: start: 20030101, end: 20040124
  3. DOMPERIDONE (DOMPERIDONE) [Suspect]
     Dosage: 20 ML
     Route: 048
     Dates: start: 20031201, end: 20040206
  4. TRAMADOL HCL [Suspect]
     Dosage: 50-100 MG, THREE TIMES DAILY
     Dates: start: 20031101, end: 20040206

REACTIONS (2)
  - BLOOD PROLACTIN INCREASED [None]
  - BREAST DISCOMFORT [None]
